FAERS Safety Report 15780535 (Version 2)
Quarter: 2020Q1

REPORT INFORMATION
  Report Type: Report from Study
  Country: US (occurrence: US)
  Receive Date: 20190102
  Receipt Date: 20200226
  Transmission Date: 20200409
  Serious: Yes (Hospitalization, Other)
  Sender: FDA-Public Use
  Company Number: US-HTU-2018US017883

PATIENT
  Sex: Female

DRUGS (1)
  1. VALCHLOR [Suspect]
     Active Substance: MECHLORETHAMINE
     Indication: CUTANEOUS T-CELL LYMPHOMA
     Dosage: THIN FILM, QOD
     Route: 061
     Dates: start: 20161028

REACTIONS (4)
  - Surgery [Unknown]
  - Off label use [Unknown]
  - Bladder operation [Unknown]
  - Urinary tract infection [Not Recovered/Not Resolved]
